FAERS Safety Report 5240506-9 (Version None)
Quarter: 2007Q1

REPORT INFORMATION
  Report Type: 
  Country: None (occurrence: None)
  Receive Date: 20070219
  Receipt Date: 20070209
  Transmission Date: 20070707
  Serious: Yes (Life-Threatening, Hospitalization, Disabling)
  Sender: FDA-Public Use
  Company Number: GB-GLAXOSMITHKLINE-B0458656A

PATIENT
  Age: 61 Year
  Sex: Male

DRUGS (5)
  1. LITHIUM CARBONATE [Suspect]
     Indication: BIPOLAR DISORDER
     Dosage: 800MG PER DAY
     Route: 048
     Dates: start: 20010101, end: 20061224
  2. FLUPENTHIXOL [Suspect]
     Indication: BIPOLAR DISORDER
     Dosage: 20MG MONTHLY
     Route: 030
     Dates: start: 20040101, end: 20061030
  3. CITALOPRAM [Concomitant]
     Indication: BIPOLAR DISORDER
     Dosage: 20MG PER DAY
     Route: 048
     Dates: start: 20010101, end: 20061224
  4. NITRAZEPAM [Concomitant]
     Indication: INSOMNIA
     Dosage: 10MG PER DAY
     Route: 048
     Dates: start: 20010101, end: 20061224
  5. PROCYCLIDINE HYDROCHLORIDE 2MG TAB [Concomitant]
     Dosage: 5MG TWICE PER DAY
     Route: 048
     Dates: start: 20010101

REACTIONS (3)
  - AGITATION [None]
  - MUSCLE RIGIDITY [None]
  - NEUROLEPTIC MALIGNANT SYNDROME [None]
